FAERS Safety Report 23453700 (Version 1)
Quarter: 2024Q1

REPORT INFORMATION
  Report Type: Spontaneous
  Country: US (occurrence: US)
  Receive Date: 20240129
  Receipt Date: 20240129
  Transmission Date: 20240409
  Serious: Yes (Death)
  Sender: FDA-Public Use
  Company Number: US-PRINSTON PHARMACEUTICAL INC.-2024PRN00026

PATIENT
  Sex: Male

DRUGS (2)
  1. CLONAZEPAM [Suspect]
     Active Substance: CLONAZEPAM
     Indication: Alcoholic seizure
     Dosage: 1 MG, EVERY 6 HOURS AS NEEDED UNDER DIRECTIONS OF NURSE
  2. ANTABUSE [Concomitant]
     Active Substance: DISULFIRAM

REACTIONS (3)
  - Hyponatraemic seizure [Fatal]
  - Head injury [Fatal]
  - Fall [Fatal]
